FAERS Safety Report 5375353-0 (Version None)
Quarter: 2007Q2

REPORT INFORMATION
  Report Type: 
  Country: None (occurrence: None)
  Receive Date: 20070629
  Receipt Date: 20070626
  Transmission Date: 20071010
  Serious: Yes (Life-Threatening, Other)
  Sender: FDA-Public Use
  Company Number: JP-ASTRAZENECA-2007AP03827

PATIENT
  Sex: Male
  Weight: 44 kg

DRUGS (19)
  1. OMEPRAL [Suspect]
     Indication: EROSIVE DUODENITIS
     Route: 048
     Dates: start: 20070320, end: 20070430
  2. AMARYL [Concomitant]
     Indication: DIABETES MELLITUS
     Route: 048
     Dates: start: 20070314, end: 20070322
  3. BASEN OD [Concomitant]
     Indication: DIABETES MELLITUS
     Route: 048
     Dates: end: 20070326
  4. HARNAL D [Concomitant]
     Indication: BENIGN PROSTATIC HYPERPLASIA
     Route: 048
     Dates: end: 20070326
  5. EVIPROSTAT [Concomitant]
     Indication: BENIGN PROSTATIC HYPERPLASIA
     Route: 048
     Dates: start: 20070326
  6. LIVACT [Concomitant]
     Indication: HEPATIC CIRRHOSIS
     Route: 048
     Dates: start: 20070410
  7. ALFAROL [Concomitant]
     Indication: OSTEOPOROSIS
     Route: 048
     Dates: start: 20070410
  8. ZOLPIDEM [Concomitant]
     Indication: INSOMNIA
     Route: 048
     Dates: start: 20070404, end: 20070417
  9. HALCION [Concomitant]
     Indication: INSOMNIA
     Route: 048
  10. GASTER D [Concomitant]
  11. ACTOS [Concomitant]
  12. URDEX [Concomitant]
  13. HEMOCURON [Concomitant]
  14. GLUFAST [Concomitant]
  15. EPADEL [Concomitant]
  16. LEBENIN [Concomitant]
  17. SULFASALAZINE [Concomitant]
     Dates: start: 20070112, end: 20070112
  18. SAIREITO [Concomitant]
     Dates: start: 20070112, end: 20070112
  19. GLUTATHIONE [Concomitant]

REACTIONS (4)
  - DIABETES MELLITUS INADEQUATE CONTROL [None]
  - DUODENAL ULCER HAEMORRHAGE [None]
  - GRANULOCYTOPENIA [None]
  - SEPTIC SHOCK [None]
